FAERS Safety Report 24274950 (Version 1)
Quarter: 2024Q3

REPORT INFORMATION
  Report Type: Spontaneous
  Country: AU (occurrence: AU)
  Receive Date: 20240902
  Receipt Date: 20240902
  Transmission Date: 20241017
  Serious: Yes (Hospitalization)
  Sender: MERCK
  Company Number: AU-009507513-2408AUS010179

PATIENT
  Age: 44 Year
  Sex: Male

DRUGS (45)
  1. PEMBROLIZUMAB [Suspect]
     Active Substance: PEMBROLIZUMAB
     Indication: Non-small cell lung cancer metastatic
     Dosage: UNK
     Route: 042
     Dates: start: 20240227, end: 20240227
  2. PEMBROLIZUMAB [Suspect]
     Active Substance: PEMBROLIZUMAB
     Dosage: UNK
     Route: 042
     Dates: start: 20240319, end: 20240319
  3. PEMBROLIZUMAB [Suspect]
     Active Substance: PEMBROLIZUMAB
     Dosage: UNK
     Route: 042
     Dates: start: 20240409, end: 20240409
  4. CARBOPLATIN [Suspect]
     Active Substance: CARBOPLATIN
     Indication: Non-small cell lung cancer metastatic
     Dosage: 5 AREA UNDER THE CURVE (AUC)
     Route: 042
     Dates: start: 20240227, end: 20240227
  5. CARBOPLATIN [Suspect]
     Active Substance: CARBOPLATIN
     Dosage: UNK
     Route: 042
     Dates: start: 20240319, end: 20240319
  6. CARBOPLATIN [Suspect]
     Active Substance: CARBOPLATIN
     Dosage: UNK
     Route: 042
     Dates: start: 20240409, end: 20240409
  7. PEMETREXED [Suspect]
     Active Substance: PEMETREXED
     Indication: Non-small cell lung cancer metastatic
     Dosage: 500 MILLIGRAM/SQ. METER, Q3W
     Route: 042
     Dates: start: 20240227, end: 20240227
  8. PEMETREXED [Suspect]
     Active Substance: PEMETREXED
     Dosage: UNK
     Route: 042
     Dates: start: 20240319, end: 20240319
  9. PEMETREXED [Suspect]
     Active Substance: PEMETREXED
     Dosage: UNK
     Route: 042
     Dates: start: 20240409, end: 20240409
  10. MOVICOL [Concomitant]
     Active Substance: POLYETHYLENE GLYCOL 3350\POTASSIUM CHLORIDE\SODIUM BICARBONATE\SODIUM CHLORIDE
     Indication: Arthralgia
     Dosage: UNK
     Dates: start: 20240306
  11. MORPHINE HYDROCHLORIDE [Concomitant]
     Active Substance: MORPHINE HYDROCHLORIDE
     Indication: Premedication
     Dosage: 2 MILLIGRAM
     Dates: start: 20240304
  12. AMLODIPINE [Concomitant]
     Active Substance: AMLODIPINE BESYLATE
     Indication: Hypertension
     Dosage: 5 MILLIGRAM, QD
     Dates: start: 20240104
  13. ASCORBIC ACID [Concomitant]
     Active Substance: ASCORBIC ACID
     Indication: Supplementation therapy
     Dosage: 500 MILLIGRAM, Q12H
     Dates: start: 20240110
  14. DROPERIDOL [Concomitant]
     Active Substance: DROPERIDOL
     Indication: Prophylaxis of nausea and vomiting
     Dosage: UNK
     Dates: start: 20240327, end: 20240327
  15. FAMOTIDINE [Concomitant]
     Active Substance: FAMOTIDINE
     Indication: Nausea
     Dosage: UNK
     Dates: start: 20240408
  16. FOLIC ACID [Concomitant]
     Active Substance: FOLIC ACID
     Indication: Back pain
     Dosage: 0.5 MILLIGRAM, QD
     Dates: start: 20240215
  17. HYDROCORTISONE [Concomitant]
     Active Substance: HYDROCORTISONE\HYDROCORTISONE ACETATE
     Dosage: 100 MILLILITER
     Dates: start: 20240319, end: 20240319
  18. HYDROXOCOBALAMIN [Concomitant]
     Active Substance: HYDROXOCOBALAMIN
     Indication: Arthralgia
     Dosage: UNK
     Dates: start: 20240227
  19. IBUPROFEN [Concomitant]
     Active Substance: IBUPROFEN
     Indication: Prophylaxis of nausea and vomiting
     Dosage: 400 MILLIGRAM
     Dates: start: 20240330, end: 20240331
  20. LORATADINE [Concomitant]
     Active Substance: LORATADINE
     Indication: Back pain
     Dosage: UNK
     Dates: start: 20240408
  21. METOCLOPRAMIDE [Concomitant]
     Active Substance: METOCLOPRAMIDE
     Indication: Prophylaxis of nausea and vomiting
     Dosage: 10 MILLIGRAM
     Dates: start: 20240327, end: 20240327
  22. METOPROLOL [Concomitant]
     Active Substance: METOPROLOL
     Indication: Hypertension
     Dosage: 12.5 MILLIGRAM, Q12H
     Dates: start: 20240103
  23. PANTOPRAZOLE SODIUM [Concomitant]
     Active Substance: PANTOPRAZOLE SODIUM
     Indication: Gastritis prophylaxis
     Dosage: 40 MILLIGRAM, QD
     Dates: start: 20240110
  24. ACETAMINOPHEN [Concomitant]
     Active Substance: ACETAMINOPHEN
     Indication: Arthralgia
     Dosage: 4 GRAM, QD
     Dates: start: 20240110
  25. ACETAMINOPHEN [Concomitant]
     Active Substance: ACETAMINOPHEN
     Indication: Insomnia
     Dosage: 1 GRAM
     Dates: start: 20240319, end: 20240319
  26. ACETAMINOPHEN [Concomitant]
     Active Substance: ACETAMINOPHEN
     Dosage: UNK
     Dates: start: 20240327, end: 20240327
  27. PERINDOPRIL [Concomitant]
     Active Substance: PERINDOPRIL
     Indication: Hypertension
     Dosage: 2.5 MILLIGRAM, QD
     Dates: start: 20240101
  28. PREDNISOLONE [Concomitant]
     Active Substance: PREDNISOLONE
     Indication: Decreased appetite
     Dosage: 10 MILLIGRAM, QD
     Dates: start: 20240215
  29. PREDNISOLONE [Concomitant]
     Active Substance: PREDNISOLONE
     Indication: Premedication
     Dosage: 10 MILLIGRAM, QD
     Dates: start: 20240215
  30. PREDNISOLONE [Concomitant]
     Active Substance: PREDNISOLONE
     Dosage: 5 MILLIGRAM, QD
     Dates: start: 20240320
  31. PREDNISOLONE [Concomitant]
     Active Substance: PREDNISOLONE
     Dosage: 5 MILLIGRAM, QD
     Dates: start: 20240320
  32. PROMETHAZINE HYDROCHLORIDE [Concomitant]
     Active Substance: PROMETHAZINE HYDROCHLORIDE
     Dosage: 12.5 MILLIGRAM
     Dates: start: 20240319, end: 20240319
  33. RIVAROXABAN [Concomitant]
     Active Substance: RIVAROXABAN
     Indication: Appetite disorder
     Dosage: 20 MILLIGRAM, QD
     Dates: start: 20240312
  34. RIVAROXABAN [Concomitant]
     Active Substance: RIVAROXABAN
     Dosage: 15 MILLIGRAM, Q12H
     Dates: start: 20240220
  35. TAPENTADOL [Concomitant]
     Active Substance: TAPENTADOL
     Indication: Nausea
     Dosage: 100 MILLIGRAM, Q12H
     Dates: start: 20240306, end: 20240315
  36. TAPENTADOL [Concomitant]
     Active Substance: TAPENTADOL
     Indication: Arthralgia
     Dosage: 50 MILLIGRAM, Q12H
     Dates: start: 20240115, end: 20240221
  37. TAPENTADOL [Concomitant]
     Active Substance: TAPENTADOL
     Indication: Infusion related reaction
     Dosage: 50 MILLIGRAM, Q12H
     Dates: start: 20240115, end: 20240221
  38. TAPENTADOL [Concomitant]
     Active Substance: TAPENTADOL
     Indication: Deep vein thrombosis
     Dosage: 50 MILLIGRAM, Q12H
     Dates: start: 20240316
  39. TAPENTADOL [Concomitant]
     Active Substance: TAPENTADOL
     Dosage: 50 MILLIGRAM, Q12H
     Dates: start: 20240316
  40. TAPENTADOL [Concomitant]
     Active Substance: TAPENTADOL
     Dosage: 50 MILLIGRAM
     Dates: start: 20240222
  41. TAPENTADOL [Concomitant]
     Active Substance: TAPENTADOL
     Dosage: 50 MILLIGRAM
     Dates: start: 20240222
  42. TAPENTADOL [Concomitant]
     Active Substance: TAPENTADOL
     Dosage: 50 MILLIGRAM, Q12H
     Dates: start: 20240222
  43. TAPENTADOL [Concomitant]
     Active Substance: TAPENTADOL
     Dosage: 50 MILLIGRAM, Q12H
     Dates: start: 20240222
  44. TEMAZEPAM [Concomitant]
     Active Substance: TEMAZEPAM
     Indication: Arthralgia
     Dosage: 10 MILLIGRAM
     Dates: start: 20240319
  45. THIAMINE HYDROCHLORIDE [Concomitant]
     Active Substance: THIAMINE HYDROCHLORIDE
     Indication: Supplementation therapy
     Dosage: 100 MILLIGRAM, QD
     Dates: start: 20240102

REACTIONS (1)
  - Pleural effusion [Recovered/Resolved]

NARRATIVE: CASE EVENT DATE: 20240320
